FAERS Safety Report 6500276-0 (Version None)
Quarter: 2009Q4

REPORT INFORMATION
  Report Type: 
  Country: None (occurrence: None)
  Receive Date: 20091216
  Receipt Date: 20091208
  Transmission Date: 20100525
  Serious: Yes (Other)
  Sender: FDA-Public Use
  Company Number: US-ROCHE-657818

PATIENT
  Sex: Female
  Weight: 84.4 kg

DRUGS (11)
  1. PEGASYS [Suspect]
     Indication: HEPATITIS C
     Dosage: FORM: PRE-FILLED SYRINGE
     Route: 065
     Dates: start: 20090827
  2. RIBAVIRIN [Suspect]
     Indication: HEPATITIS C
     Dosage: DIVIDED DOSES, TAKEN 3 TABLETS A.M AND 2 TABLETS P.M
     Route: 048
     Dates: start: 20090827
  3. XANAX [Concomitant]
  4. VISTARIL [Concomitant]
  5. ALDACTONE [Concomitant]
     Route: 048
  6. THYROID TAB [Concomitant]
     Dosage: DRUG REPORTED AS: ARMOUR.
  7. CORTEF [Concomitant]
  8. NEURONTIN [Concomitant]
  9. PRAZOSIN HYDROCHLORIDE [Concomitant]
  10. TEGRETOL [Concomitant]
  11. TRAZODONE HCL [Concomitant]

REACTIONS (7)
  - AGORAPHOBIA [None]
  - DEPRESSION [None]
  - HYPERTHYROIDISM [None]
  - RED BLOOD CELL COUNT DECREASED [None]
  - SOCIAL PHOBIA [None]
  - SUICIDAL IDEATION [None]
  - WHITE BLOOD CELL COUNT DECREASED [None]
